FAERS Safety Report 9350755 (Version 1)
Quarter: 2013Q2

REPORT INFORMATION
  Report Type: Report from Study
  Country: US (occurrence: US)
  Receive Date: 20130617
  Receipt Date: 20130617
  Transmission Date: 20140414
  Serious: Yes (Other)
  Sender: FDA-Public Use
  Company Number: PHEH2012US025270

PATIENT
  Age: 56 Year
  Sex: Female
  Weight: 60.77 kg

DRUGS (11)
  1. GLEEVEC [Suspect]
     Indication: CHRONIC MYELOID LEUKAEMIA
     Dosage: 400 MG, QD
     Route: 048
     Dates: end: 20121222
  2. ATENOLOL [Concomitant]
  3. OMEPRAZOLE [Concomitant]
  4. SINGULAIR [Concomitant]
  5. CHOLESTYRAMINE [Concomitant]
  6. CITRACAL [Concomitant]
  7. CALTRATE WITH VITAMIN D [Concomitant]
     Dosage: 600-800
  8. PROBIOTICS [Concomitant]
  9. VITAMAN [Concomitant]
     Dosage: UNK
  10. POLYSPORIN [Concomitant]
  11. MONTELUKAST [Concomitant]

REACTIONS (6)
  - Oesophageal disorder [Unknown]
  - Stress [Unknown]
  - Flatulence [Unknown]
  - Diarrhoea [Unknown]
  - Rash [Unknown]
  - Drug ineffective [Unknown]
